FAERS Safety Report 13017172 (Version 1)
Quarter: 2016Q4

REPORT INFORMATION
  Report Type: Spontaneous
  Country: DE (occurrence: DE)
  Receive Date: 20161212
  Receipt Date: 20161212
  Transmission Date: 20170207
  Serious: Yes (Death, Hospitalization)
  Sender: FDA-Public Use
  Company Number: DE-INGENUS PHARMACEUTICALS NJ, LLC-ING201611-000150

PATIENT
  Age: 43 Year
  Sex: Female

DRUGS (1)
  1. CARISOPRODOL AND ASPIRIN [Suspect]
     Active Substance: ASPIRIN\CARISOPRODOL
     Indication: SUICIDE ATTEMPT

REACTIONS (9)
  - Hypocalcaemia [Fatal]
  - Intentional overdose [Unknown]
  - Lactic acidosis [Unknown]
  - Tetany [Unknown]
  - Cardiac arrest [Unknown]
  - Hyperphosphataemia [Unknown]
  - Arterial spasm [Unknown]
  - Completed suicide [Fatal]
  - Toxicity to various agents [Fatal]
